FAERS Safety Report 15820337 (Version 1)
Quarter: 2019Q1

REPORT INFORMATION
  Report Type: Report from Study
  Country: None (occurrence: AR)
  Receive Date: 20190114
  Receipt Date: 20190114
  Transmission Date: 20190417
  Serious: Yes (Other)
  Sender: FDA-Public Use
  Company Number: AR-ABBVIE-18K-007-2601935-00

PATIENT
  Age: 58 Year
  Sex: Female

DRUGS (2)
  1. HUMIRA [Suspect]
     Active Substance: ADALIMUMAB
     Indication: RHEUMATOID ARTHRITIS
     Route: 058
  2. HUMIRA [Suspect]
     Active Substance: ADALIMUMAB
     Indication: RHEUMATOID ARTHRITIS
     Route: 058
     Dates: start: 20080101

REACTIONS (9)
  - Dermatitis allergic [Unknown]
  - Allergy to arthropod sting [Not Recovered/Not Resolved]
  - Immunodeficiency [Recovered/Resolved]
  - Hypersensitivity [Unknown]
  - Tachycardia [Recovered/Resolved]
  - Pneumonia [Not Recovered/Not Resolved]
  - Stress [Unknown]
  - Headache [Recovered/Resolved]
  - Frontal lobe epilepsy [Recovering/Resolving]

NARRATIVE: CASE EVENT DATE: 2012
